FAERS Safety Report 19068258 (Version 1)
Quarter: 2021Q1

REPORT INFORMATION
  Report Type: Spontaneous
  Country: US (occurrence: US)
  Receive Date: 20210329
  Receipt Date: 20210329
  Transmission Date: 20210420
  Serious: No
  Sender: FDA-Public Use
  Company Number: US-RECORDATI-2021000765

PATIENT

DRUGS (1)
  1. ISTURISA [Suspect]
     Active Substance: OSILODROSTAT PHOSPHATE
     Indication: PITUITARY-DEPENDENT CUSHING^S SYNDROME
     Dosage: 3 MILLIGRAM, BID

REACTIONS (5)
  - Rash [Recovered/Resolved]
  - Skin hyperpigmentation [Not Recovered/Not Resolved]
  - Metrorrhagia [Recovered/Resolved]
  - Blood testosterone increased [Unknown]
  - Rash [Not Recovered/Not Resolved]
